FAERS Safety Report 15084662 (Version 1)
Quarter: 2018Q2

REPORT INFORMATION
  Report Type: Spontaneous
  Country: US (occurrence: US)
  Receive Date: 20180608
  Receipt Date: 20180608
  Transmission Date: 20180711
  Serious: No
  Sender: FDA-Public Use
  Company Number: None

PATIENT
  Age: 46 Year
  Sex: Male
  Weight: 124 kg

DRUGS (4)
  1. ZOLOFT [Suspect]
     Active Substance: SERTRALINE HYDROCHLORIDE
     Indication: BIPOLAR II DISORDER
     Dates: start: 20130201, end: 20170201
  2. AMITRYPTALINE [Concomitant]
     Active Substance: AMITRIPTYLINE
  3. TRAZODONE [Concomitant]
     Active Substance: TRAZODONE HYDROCHLORIDE
  4. RISPERDONE [Concomitant]
     Active Substance: RISPERIDONE

REACTIONS (3)
  - Drug intolerance [None]
  - Product substitution issue [None]
  - Treatment failure [None]
